FAERS Safety Report 9928042 (Version 2)
Quarter: 2014Q1

REPORT INFORMATION
  Report Type: Spontaneous
  Country: JP (occurrence: JP)
  Receive Date: 20140227
  Receipt Date: 20140307
  Transmission Date: 20141002
  Serious: Yes (Hospitalization)
  Sender: FDA-Public Use
  Company Number: JP-AMGEN-JPNSP2014013939

PATIENT
  Age: 7 Decade
  Sex: Male

DRUGS (6)
  1. ARANESP [Suspect]
     Indication: NEPHROGENIC ANAEMIA
     Dosage: UNK UNK, 1X/WEEK
     Route: 040
     Dates: start: 201401, end: 201402
  2. NAOTAMIN [Suspect]
     Indication: PRODUCT USED FOR UNKNOWN INDICATION
     Dosage: UNK
     Route: 042
  3. ADALAT [Suspect]
     Indication: PRODUCT USED FOR UNKNOWN INDICATION
     Dosage: UNK
     Route: 048
  4. BROTIZOLAM [Concomitant]
     Dosage: UNK
     Route: 048
  5. HEPARIN [Concomitant]
     Dosage: UNK
     Route: 065
  6. HEPARIN CALCIUM [Concomitant]
     Dosage: UNK
     Route: 065

REACTIONS (5)
  - Eosinophil count increased [Recovering/Resolving]
  - Blood pressure decreased [Recovering/Resolving]
  - Dyspnoea [Recovering/Resolving]
  - Pruritus [Recovering/Resolving]
  - Rash [Recovering/Resolving]
